FAERS Safety Report 8488940-8 (Version None)
Quarter: 2012Q3

REPORT INFORMATION
  Report Type: 
  Country: None (occurrence: None)
  Receive Date: 20120705
  Receipt Date: 20120625
  Transmission Date: 20120928
  Serious: Yes (Other)
  Sender: FDA-Public Use
  Company Number: US-ROCHE-791236

PATIENT
  Sex: Male
  Weight: 49.032 kg

DRUGS (2)
  1. ACCUTANE [Suspect]
     Indication: ACNE
     Route: 065
     Dates: start: 19961101, end: 19970501
  2. ACCUTANE [Suspect]
     Route: 065
     Dates: start: 20021101, end: 20030501

REACTIONS (4)
  - COLITIS ULCERATIVE [None]
  - STRESS [None]
  - HEPATIC ENZYME INCREASED [None]
  - INFLAMMATORY BOWEL DISEASE [None]
